FAERS Safety Report 20503939 (Version 3)
Quarter: 2024Q3

REPORT INFORMATION
  Report Type: Spontaneous
  Country: JP (occurrence: JP)
  Receive Date: 20220222
  Receipt Date: 20240820
  Transmission Date: 20241017
  Serious: Yes (Other)
  Sender: MERCK
  Company Number: JP-MSD-M2022-07008

PATIENT
  Age: 62 Year
  Sex: Female

DRUGS (2)
  1. LAGEVRIO [Suspect]
     Active Substance: MOLNUPIRAVIR
     Indication: COVID-19 treatment
     Dosage: 800 MILLIGRAM, BID
     Route: 048
     Dates: start: 20220209, end: 20220211
  2. LAGEVRIO [Suspect]
     Active Substance: MOLNUPIRAVIR
     Dosage: 800 MILLIGRAM, ONCE
     Route: 048
     Dates: start: 20220212, end: 20220212

REACTIONS (1)
  - Toxic skin eruption [Recovering/Resolving]

NARRATIVE: CASE EVENT DATE: 20220212
